FAERS Safety Report 6916595-X (Version None)
Quarter: 2010Q3

REPORT INFORMATION
  Report Type: 
  Country: None (occurrence: None)
  Receive Date: 20100810
  Receipt Date: 20100727
  Transmission Date: 20110219
  Serious: Yes (Hospitalization)
  Sender: FDA-Public Use
  Company Number: BR-MEDIMMUNE-MEDI-0011440

PATIENT
  Sex: Male
  Weight: 12 kg

DRUGS (4)
  1. SYNAGIS [Suspect]
     Indication: RESPIRATORY DISORDER
     Route: 030
     Dates: start: 20090101
  2. POLIVITAMINE [Concomitant]
     Indication: VITAMIN SUPPLEMENTATION
     Route: 048
     Dates: start: 20080910
  3. FERROUS SUL TAB [Concomitant]
     Route: 048
     Dates: start: 20080910
  4. FLUCONAZOLE [Concomitant]
     Indication: FUNGAL INFECTION
     Route: 048
     Dates: start: 20080910, end: 20100301

REACTIONS (7)
  - COUGH [None]
  - DECREASED APPETITE [None]
  - DECREASED IMMUNE RESPONSIVENESS [None]
  - LISTLESS [None]
  - LUNG INFECTION [None]
  - MEDICAL DEVICE COMPLICATION [None]
  - NASOPHARYNGITIS [None]
